FAERS Safety Report 8861975 (Version 1)
Quarter: 2012Q4

REPORT INFORMATION
  Report Type: 
  Country: US (occurrence: US)
  Receive Date: 20121025
  Receipt Date: 20121025
  Transmission Date: 20130627
  Serious: Yes (Other)
  Sender: FDA-Public Use
  Company Number: US-PFIZER INC-2012265492

PATIENT
  Age: 53 Year
  Sex: Female
  Weight: 78.46 kg

DRUGS (3)
  1. LYRICA [Suspect]
     Indication: MULTIPLE SCLEROSIS
     Dosage: 50 mg, (25mg two capsules at night daily)
     Route: 048
     Dates: start: 201209, end: 20121019
  2. LYRICA [Suspect]
     Indication: MYALGIA
  3. TUMS [Suspect]
     Dosage: UNK
     Dates: start: 201210, end: 201210

REACTIONS (6)
  - Local swelling [Recovering/Resolving]
  - Drug ineffective [Unknown]
  - Rash [Recovering/Resolving]
  - Oropharyngeal pain [Recovering/Resolving]
  - Dysphagia [Recovering/Resolving]
  - Night sweats [Recovering/Resolving]
